FAERS Safety Report 9953437 (Version 1)
Quarter: 2014Q1

REPORT INFORMATION
  Report Type: Report from Study
  Country: US (occurrence: US)
  Receive Date: 20140304
  Receipt Date: 20140304
  Transmission Date: 20141002
  Serious: No
  Sender: FDA-Public Use
  Company Number: US-ABBVIE-13P-163-1075551-00

PATIENT
  Age: 51 Year
  Sex: Female

DRUGS (11)
  1. HUMIRA [Suspect]
     Indication: CROHN^S DISEASE
     Dates: start: 20121124
  2. ANAFRANIL [Concomitant]
     Indication: DEPRESSION
  3. ATIVAN [Concomitant]
     Indication: ANXIETY
  4. ACIPHEX [Concomitant]
     Indication: GASTRIC DISORDER
  5. CYCLOPRINE [Concomitant]
     Indication: ARTHRALGIA
  6. ATORVASTATIN [Concomitant]
     Indication: BLOOD CHOLESTEROL
  7. LEVOTHYROXIN [Concomitant]
     Indication: HYPOTHYROIDISM
  8. TRAMADOL [Concomitant]
     Indication: PAIN
  9. TYLENOL [Concomitant]
     Indication: PRODUCT USED FOR UNKNOWN INDICATION
  10. ORPHENADRINE [Concomitant]
     Indication: PAIN
  11. ASPIRIN [Concomitant]
     Indication: CARDIAC DISORDER

REACTIONS (5)
  - Wrong technique in drug usage process [Not Recovered/Not Resolved]
  - Incorrect route of drug administration [Not Recovered/Not Resolved]
  - Drug dispensing error [Not Recovered/Not Resolved]
  - Injection site haemorrhage [Not Recovered/Not Resolved]
  - Nausea [Not Recovered/Not Resolved]
